FAERS Safety Report 4997408-2 (Version None)
Quarter: 2006Q1

REPORT INFORMATION
  Report Type: 
  Country: None (occurrence: None)
  Receive Date: 20060315
  Receipt Date: 20051129
  Transmission Date: 20060701
  Serious: Yes (Other)
  Sender: FDA-Public Use
  Company Number: 427005

PATIENT
  Age: 64 Year
  Sex: Female

DRUGS (7)
  1. BONIVA [Suspect]
     Dosage: ORAL
     Route: 048
     Dates: start: 20051117
  2. OMEPRAZOLE [Concomitant]
  3. CHLORDIAZEPOXIDE/CLIDINIUM BR (CHLORDIAZEPOXIDDE HYDROCHLORIDE/CLIDINI [Concomitant]
  4. PANCRELIPASE (PANCRELIPASE) [Concomitant]
  5. 1 CONCOMITANT DRUG (GENERIC UNKNOWN) [Concomitant]
  6. SLEEPING PILL NOS (HYPNOTIC NOS) [Concomitant]
  7. LEXAPRO [Concomitant]

REACTIONS (1)
  - BURNING SENSATION [None]
